FAERS Safety Report 4843051-5 (Version None)
Quarter: 2005Q4

REPORT INFORMATION
  Report Type: 
  Country: None (occurrence: None)
  Receive Date: 20051130
  Receipt Date: 20051121
  Transmission Date: 20060501
  Serious: Yes (Other)
  Sender: FDA-Public Use
  Company Number: 2005-11-1138

PATIENT
  Age: 19 Year
  Sex: Female

DRUGS (5)
  1. AERIUS (DESLORATADINE) [Suspect]
     Indication: RHINITIS ALLERGIC
     Dosage: 5 MG TAB* ORAL
     Route: 048
     Dates: start: 20051116, end: 20051116
  2. AERIUS (DESLORATADINE) [Suspect]
     Indication: RHINITIS ALLERGIC
     Dosage: 5 MG TAB* ORAL
     Route: 048
     Dates: start: 20051117, end: 20051117
  3. AERIUS (DESLORATADINE) [Suspect]
     Indication: RHINITIS ALLERGIC
     Dosage: 5 MG TAB* ORAL
     Route: 048
     Dates: start: 20051118, end: 20051120
  4. SERETIDE [Suspect]
     Indication: ASTHMA
     Dosage: 250 BID/QD*
     Dates: start: 20051116, end: 20051118
  5. SERETIDE [Suspect]
     Indication: ASTHMA
     Dosage: 250 BID/QD*
     Dates: start: 20051101, end: 20051120

REACTIONS (1)
  - SYNCOPE [None]
